FAERS Safety Report 5097998-8 (Version None)
Quarter: 2006Q3

REPORT INFORMATION
  Report Type: 
  Country: None (occurrence: None)
  Receive Date: 20060905
  Receipt Date: 20060821
  Transmission Date: 20061208
  Serious: Yes (Other)
  Sender: FDA-Public Use
  Company Number: ALA_0008_2006

PATIENT
  Sex: Female

DRUGS (3)
  1. ROWASA [Suspect]
     Indication: COLITIS ULCERATIVE
     Dosage: 4 G PRN RC
     Dates: start: 20060814
  2. ASACOL [Concomitant]
  3. HYDROCORTISONE ENEMA [Concomitant]

REACTIONS (3)
  - CHEST DISCOMFORT [None]
  - DYSPNOEA [None]
  - HAEMORRHAGE [None]
